FAERS Safety Report 5219341-3 (Version None)
Quarter: 2007Q1

REPORT INFORMATION
  Report Type: 
  Country: None (occurrence: None)
  Receive Date: 20070125
  Receipt Date: 20070122
  Transmission Date: 20070707
  Serious: Yes (Hospitalization)
  Sender: FDA-Public Use
  Company Number: FR-BRISTOL-MYERS SQUIBB COMPANY-13655196

PATIENT
  Age: 61 Year
  Sex: Female

DRUGS (2)
  1. TAXOL [Suspect]
     Route: 042
  2. CARBOPLATIN [Suspect]

REACTIONS (1)
  - PAPILLOEDEMA [None]
